FAERS Safety Report 4298726-6 (Version None)
Quarter: 2004Q1

REPORT INFORMATION
  Report Type: 
  Country: None (occurrence: None)
  Receive Date: 20040126
  Receipt Date: 20031022
  Transmission Date: 20041129
  Serious: No
  Sender: FDA-Public Use
  Company Number: USA031050458

PATIENT
  Age: 1 Year
  Weight: 11 kg

DRUGS (1)
  1. STRATTERA [Suspect]
     Dosage: 75 MG
     Dates: start: 20031021, end: 20031021

REACTIONS (1)
  - ACCIDENTAL OVERDOSE [None]
